FAERS Safety Report 9264858 (Version 1)
Quarter: 2013Q2

REPORT INFORMATION
  Report Type: Report from Study
  Country: MX (occurrence: MX)
  Receive Date: 20130501
  Receipt Date: 20130501
  Transmission Date: 20140414
  Serious: Yes (Death)
  Sender: FDA-Public Use
  Company Number: PHHY2012MX057216

PATIENT
  Age: 66 Year
  Sex: Female

DRUGS (3)
  1. GALVUS MET [Suspect]
     Indication: DIABETES MELLITUS
     Dosage: 2 DF (500MG METFORMIN/50MG VILDAGLIPTIN), PER DAY
  2. EXFORGE [Suspect]
     Dosage: 2 DF, PER DAY
     Dates: start: 20110110
  3. VITAMINS NOS [Concomitant]
     Dosage: 1 DF, PER DAY

REACTIONS (1)
  - Diabetes mellitus [Fatal]
